FAERS Safety Report 21367736 (Version 2)
Quarter: 2023Q1

REPORT INFORMATION
  Report Type: Report from Study
  Country: GB (occurrence: GB)
  Receive Date: 20220923
  Receipt Date: 20230112
  Transmission Date: 20230418
  Serious: Yes (Other)
  Sender: FDA-Public Use
  Company Number: GB-ALLERGAN-2227900US

PATIENT
  Age: 25 Year
  Sex: Female

DRUGS (3)
  1. ACITRETIN [Suspect]
     Active Substance: ACITRETIN
     Indication: Ichthyosis
     Dosage: TOTAL CUMULATIVE DOSE OF ACITRETIN WAS 106763MG.
     Route: 065
  2. ISOTRETINOIN [Suspect]
     Active Substance: ISOTRETINOIN
     Indication: Ichthyosis
     Dosage: TOTAL CUMULATIVE DOSE OF ISOTRETINOIN WAS 131400MG
     Route: 065
  3. CHOLECALCIFEROL [Concomitant]
     Active Substance: CHOLECALCIFEROL
     Indication: Product used for unknown indication
     Route: 065

REACTIONS (3)
  - Spinal ligament ossification [Unknown]
  - Bone hypertrophy [Unknown]
  - Musculoskeletal disorder [Unknown]
